FAERS Safety Report 15963652 (Version 1)
Quarter: 2019Q1

REPORT INFORMATION
  Report Type: Spontaneous
  Country: US (occurrence: US)
  Receive Date: 20190214
  Receipt Date: 20190214
  Transmission Date: 20190417
  Serious: No
  Sender: FDA-Public Use
  Company Number: US-COLLEGIUM PHARMACEUTICAL, INC.-2019CGM00036

PATIENT
  Age: 68 Year
  Sex: Female
  Weight: 85.26 kg

DRUGS (7)
  1. EPIPEN [Concomitant]
     Active Substance: EPINEPHRINE
  2. XTAMPZA ER [Suspect]
     Active Substance: OXYCODONE
     Dosage: UNK
     Route: 048
     Dates: end: 20190128
  3. XTAMPZA ER [Suspect]
     Active Substance: OXYCODONE
     Indication: PAIN
     Dosage: 18 MG, 2X/DAY (6:00 AM AND 6:00 PM)
     Route: 048
     Dates: start: 201811, end: 20190128
  4. THEOLAIR SR [Concomitant]
  5. SYNTHROID [Concomitant]
     Active Substance: LEVOTHYROXINE SODIUM
     Dosage: 5 UNK, 1X/DAY
  6. MAGNESIUM [Concomitant]
     Active Substance: MAGNESIUM
     Dosage: 2000 MG, 4X/DAY
  7. CALM POWDER [Concomitant]
     Dosage: UNK, 4X/DAY

REACTIONS (9)
  - Intentional dose omission [Recovered/Resolved]
  - Dependence [Recovered/Resolved]
  - Oropharyngeal pain [Recovered/Resolved]
  - Regurgitation [Recovered/Resolved]
  - Drug withdrawal syndrome [Recovered/Resolved]
  - Underdose [Recovered/Resolved]
  - Throat irritation [Recovered/Resolved]
  - Dysphonia [Recovered/Resolved]
  - Aphonia [Recovered/Resolved]

NARRATIVE: CASE EVENT DATE: 201811
